FAERS Safety Report 20950873 (Version 1)
Quarter: 2022Q2

REPORT INFORMATION
  Report Type: Spontaneous
  Country: DE (occurrence: DE)
  Receive Date: 20220613
  Receipt Date: 20220613
  Transmission Date: 20220721
  Serious: Yes (Life-Threatening, Hospitalization, Other)
  Sender: FDA-Public Use
  Company Number: DE-MYLANLABS-2022M1044167

PATIENT
  Sex: Female

DRUGS (1)
  1. HULIO [Suspect]
     Active Substance: ADALIMUMAB-FKJP
     Indication: Rheumatic disorder
     Dosage: UNK
     Dates: start: 20211107, end: 20211107

REACTIONS (6)
  - Anaphylactic reaction [Unknown]
  - Loss of consciousness [Unknown]
  - Urticaria [Unknown]
  - Swollen tongue [Unknown]
  - Cardiovascular disorder [Unknown]
  - Dizziness [Unknown]

NARRATIVE: CASE EVENT DATE: 20211107
